FAERS Safety Report 11228580 (Version 1)
Quarter: 2015Q2

REPORT INFORMATION
  Report Type: Spontaneous
  Country: US (occurrence: US)
  Receive Date: 20150630
  Receipt Date: 20150630
  Transmission Date: 20150821
  Serious: Yes (Death)
  Sender: FDA-Public Use
  Company Number: US-MEDA-2015010129

PATIENT
  Age: 64 Year
  Sex: Female

DRUGS (5)
  1. SALICYLATE [Suspect]
     Active Substance: SALICYLIC ACID
  2. CARISOPRODOL. [Suspect]
     Active Substance: CARISOPRODOL
  3. HYDROCODONE W/ACETAMINOPHEN [Suspect]
     Active Substance: ACETAMINOPHEN\HYDROCODONE BITARTRATE
  4. ETHANOL [Suspect]
     Active Substance: ALCOHOL
  5. ACETAMINOPHEN. [Suspect]
     Active Substance: ACETAMINOPHEN

REACTIONS (1)
  - Intentional product misuse [Fatal]

NARRATIVE: CASE EVENT DATE: 2013
